FAERS Safety Report 16041818 (Version 1)
Quarter: 2019Q2

REPORT INFORMATION
  Report Type: Spontaneous
  Country: US (occurrence: US)
  Receive Date: 20190306
  Receipt Date: 20190306
  Transmission Date: 20190711
  Serious: Yes (Disabling)
  Sender: FDA-Public Use
  Company Number: None

PATIENT
  Age: 61 Year
  Sex: Male
  Weight: 90.72 kg

DRUGS (6)
  1. GABAPENTIN. [Concomitant]
     Active Substance: GABAPENTIN
  2. LEXAPRO [Concomitant]
     Active Substance: ESCITALOPRAM OXALATE
  3. DEPAKOTE [Concomitant]
     Active Substance: DIVALPROEX SODIUM
  4. LEVAQUIN [Suspect]
     Active Substance: LEVOFLOXACIN
  5. LAMICTAL [Concomitant]
     Active Substance: LAMOTRIGINE
  6. CIPROFLOXACIN. [Suspect]
     Active Substance: CIPROFLOXACIN
     Indication: OSTEOMYELITIS
     Route: 048
     Dates: start: 20180707, end: 20180717

REACTIONS (4)
  - Arthropathy [None]
  - Tendon disorder [None]
  - Gait disturbance [None]
  - Memory impairment [None]

NARRATIVE: CASE EVENT DATE: 20180707
